FAERS Safety Report 6388336-9 (Version None)
Quarter: 2009Q4

REPORT INFORMATION
  Report Type: 
  Country: None (occurrence: None)
  Receive Date: 20091001
  Receipt Date: 20091001
  Transmission Date: 20100525
  Serious: No
  Sender: FDA-Public Use
  Company Number: None

PATIENT

DRUGS (1)
  1. WELLBUTRIN [Suspect]

REACTIONS (5)
  - AKATHISIA [None]
  - COMPLETED SUICIDE [None]
  - IRRITABILITY [None]
  - MEDICATION ERROR [None]
  - PRODUCT SUBSTITUTION ISSUE [None]
